FAERS Safety Report 9200151 (Version 1)
Quarter: 2013Q1

REPORT INFORMATION
  Report Type: Spontaneous
  Country: AU (occurrence: AU)
  Receive Date: 20130329
  Receipt Date: 20130329
  Transmission Date: 20140127
  Serious: Yes (Hospitalization)
  Sender: FDA-Public Use
  Company Number: AU-B.I. PHARMACEUTICALS,INC./RIDGEFIELD-2013-AU-00326AU

PATIENT
  Age: 60 None
  Sex: Male

DRUGS (20)
  1. TRAJENTA [Suspect]
     Indication: DIABETES MELLITUS
     Dosage: 5 MG
     Dates: start: 201207, end: 201209
  2. METHOTREXATE [Concomitant]
  3. PLAQUENIL [Concomitant]
  4. LANOXIN [Concomitant]
  5. MONODUR [Concomitant]
  6. LISINOPRIL [Concomitant]
  7. ESOMEPRAZOLE [Concomitant]
  8. SYMBICORT [Concomitant]
  9. SPIRIVA [Concomitant]
  10. VITAMIN D [Concomitant]
  11. SPIRONOLACTONE [Concomitant]
  12. PREGABALIN [Concomitant]
  13. FRUSEMIDE [Concomitant]
  14. ATORVASTATIN [Concomitant]
  15. DOXEPIN [Concomitant]
  16. DIAMICRON [Concomitant]
  17. CALTRATE [Concomitant]
  18. PREDNISOLONE [Concomitant]
  19. FOLIC ACID [Concomitant]
  20. THYROXIN [Concomitant]

REACTIONS (2)
  - Respiratory failure [Recovered/Resolved]
  - Blood glucose abnormal [Unknown]
